FAERS Safety Report 9492171 (Version 2)
Quarter: 2013Q3

REPORT INFORMATION
  Report Type: Spontaneous
  Country: US (occurrence: US)
  Receive Date: 20130830
  Receipt Date: 20130924
  Transmission Date: 20140515
  Serious: Yes (Other)
  Sender: FDA-Public Use
  Company Number: US-TEVA-429421USA

PATIENT
  Age: 58 Year
  Sex: Male

DRUGS (1)
  1. COPAXONE [Suspect]
     Dates: start: 2008, end: 20130810

REACTIONS (3)
  - Injection site abscess [Not Recovered/Not Resolved]
  - Injection site necrosis [Not Recovered/Not Resolved]
  - Product formulation issue [Unknown]
